FAERS Safety Report 9806888 (Version 1)
Quarter: 2014Q1

REPORT INFORMATION
  Report Type: Spontaneous
  Country: US (occurrence: US)
  Receive Date: 20140109
  Receipt Date: 20140109
  Transmission Date: 20141002
  Serious: No
  Sender: FDA-Public Use
  Company Number: US-ABBVIE-13P-163-1063630-00

PATIENT
  Age: 57 Year
  Sex: Female

DRUGS (2)
  1. VICODIN [Suspect]
     Indication: PRODUCT USED FOR UNKNOWN INDICATION
  2. VOLTAREN [Concomitant]
     Indication: ARTHRALGIA

REACTIONS (3)
  - Drug ineffective [Unknown]
  - Fall [Unknown]
  - Local swelling [Unknown]
